FAERS Safety Report 5115067-5 (Version None)
Quarter: 2006Q3

REPORT INFORMATION
  Report Type: 
  Country: None (occurrence: None)
  Receive Date: 20060925
  Receipt Date: 20060925
  Transmission Date: 20061208
  Serious: Yes (Life-Threatening)
  Sender: FDA-Public Use
  Company Number: None

PATIENT
  Age: 85 Year
  Sex: Male
  Weight: 68 kg

DRUGS (10)
  1. POTASSIUM CHLORIDE 40MEQ [Suspect]
     Indication: BLOOD POTASSIUM DECREASED
     Dosage: 40 MEQ BUD OI
     Route: 048
     Dates: start: 20050418, end: 20050419
  2. OMEPRAZOLE [Concomitant]
  3. MORPHINE [Concomitant]
  4. METOPROLOL TARTRATE [Concomitant]
  5. LEVOTHYROXINE SODIUM [Concomitant]
  6. ISOSORBIDE [Concomitant]
  7. DINITRATE [Concomitant]
  8. INSULIN [Concomitant]
  9. DOCUSATE [Concomitant]
  10. TYLENOL (CAPLET) [Concomitant]

REACTIONS (3)
  - BLOOD POTASSIUM INCREASED [None]
  - CHEST PAIN [None]
  - RESPIRATORY DISORDER [None]
